FAERS Safety Report 10247196 (Version 1)
Quarter: 2014Q2

REPORT INFORMATION
  Report Type: Spontaneous
  Country: CA (occurrence: CA)
  Receive Date: 20140619
  Receipt Date: 20140619
  Transmission Date: 20141212
  Serious: Yes (Other)
  Sender: FDA-Public Use
  Company Number: CA-GLAXOSMITHKLINE-A0874802A

PATIENT
  Age: 57 Year
  Sex: Male

DRUGS (1)
  1. AVODART [Suspect]
     Indication: PRODUCT USED FOR UNKNOWN INDICATION
     Dosage: .5MG AT NIGHT
     Route: 065
     Dates: start: 201007, end: 201406

REACTIONS (5)
  - Bladder cancer [Unknown]
  - Bladder neoplasm surgery [Unknown]
  - Feeling hot [Unknown]
  - Flushing [Unknown]
  - Insomnia [Recovering/Resolving]
